FAERS Safety Report 8128427-5 (Version None)
Quarter: 2012Q1

REPORT INFORMATION
  Report Type: 
  Country: None (occurrence: None)
  Receive Date: 20120103
  Receipt Date: 20110902
  Transmission Date: 20120608
  Serious: No
  Sender: FDA-Public Use
  Company Number: AE-2011-001243

PATIENT
  Age: 53 Year
  Sex: Female
  Weight: 55.7924 kg

DRUGS (4)
  1. INCIVEK [Suspect]
     Dosage: 2250 MG (750 MG, 1 IN 8HR), ORAL
     Route: 048
     Dates: start: 20110821
  2. RIBAVIRIN [Concomitant]
  3. VICOPROFEN [Concomitant]
  4. PEGASYS [Concomitant]

REACTIONS (2)
  - MIGRAINE [None]
  - INAPPROPRIATE SCHEDULE OF DRUG ADMINISTRATION [None]
